FAERS Safety Report 25210335 (Version 1)
Quarter: 2025Q2

REPORT INFORMATION
  Report Type: Report from Study
  Country: US (occurrence: US)
  Receive Date: 20250417
  Receipt Date: 20250417
  Transmission Date: 20250716
  Serious: Yes (Death, Other)
  Sender: TAKEDA
  Company Number: US-TAKEDA-2025TUS037802

PATIENT
  Sex: Male

DRUGS (1)
  1. VORTIOXETINE [Suspect]
     Active Substance: VORTIOXETINE
     Indication: Product used for unknown indication

REACTIONS (1)
  - Death [Fatal]
